FAERS Safety Report 5007935-X (Version None)
Quarter: 2006Q2

REPORT INFORMATION
  Report Type: 
  Country: None (occurrence: None)
  Receive Date: 20060517
  Receipt Date: 20060502
  Transmission Date: 20061013
  Serious: Yes (Other)
  Sender: FDA-Public Use
  Company Number: 2006RR-02174

PATIENT
  Sex: Female

DRUGS (1)
  1. CIPRO BASICS                 FILMTABLETTEN (CIPROFLOXACIN) [Suspect]
     Indication: HYPERTENSION
     Dosage: ORAL
     Route: 048

REACTIONS (4)
  - ABDOMINAL PAIN UPPER [None]
  - DIARRHOEA [None]
  - INTRACRANIAL PRESSURE INCREASED [None]
  - OEDEMA PERIPHERAL [None]
